FAERS Safety Report 7961319-0 (Version None)
Quarter: 2011Q4

REPORT INFORMATION
  Report Type: 
  Country: None (occurrence: None)
  Receive Date: 20111201
  Receipt Date: 20111201
  Transmission Date: 20120403
  Serious: Yes (Death)
  Sender: FDA-Public Use
  Company Number: None

PATIENT
  Age: 77 Year
  Sex: Female
  Weight: 48 kg

DRUGS (9)
  1. PRADAXA [Suspect]
     Indication: ATRIAL FIBRILLATION
     Dates: start: 20110705, end: 20110803
  2. ACETAMINOPHEN [Concomitant]
  3. SPIRONOLACTONE [Concomitant]
  4. ASPIRIN [Concomitant]
  5. FUROSEMIDE [Concomitant]
  6. BACTRIM [Concomitant]
  7. DILTIAZEM HCL [Concomitant]
  8. METOPROLOL TARTRATE [Concomitant]
  9. LANSOPRAZOLE [Concomitant]

REACTIONS (4)
  - INTESTINAL ISCHAEMIA [None]
  - GASTROINTESTINAL HAEMORRHAGE [None]
  - HAEMOGLOBIN DECREASED [None]
  - HAEMODYNAMIC INSTABILITY [None]
